FAERS Safety Report 23871447 (Version 1)
Quarter: 2024Q2

REPORT INFORMATION
  Report Type: Report from Study
  Country: US (occurrence: US)
  Receive Date: 20240519
  Receipt Date: 20240519
  Transmission Date: 20240716
  Serious: Yes (Hospitalization)
  Sender: FDA-Public Use
  Company Number: US-JNJFOC-20240546791

PATIENT
  Age: 72 Year
  Sex: Male

DRUGS (1)
  1. BALVERSA [Suspect]
     Active Substance: ERDAFITINIB
     Indication: Malignant urinary tract neoplasm
     Route: 048

REACTIONS (4)
  - Hospitalisation [Recovering/Resolving]
  - Product dose omission issue [Unknown]
  - Therapy cessation [Unknown]
  - Therapy change [Unknown]

NARRATIVE: CASE EVENT DATE: 20240507
